FAERS Safety Report 6553701-3 (Version None)
Quarter: 2010Q1

REPORT INFORMATION
  Report Type: 
  Country: None (occurrence: None)
  Receive Date: 20100125
  Receipt Date: 20100125
  Transmission Date: 20100710
  Serious: Yes (Other)
  Sender: FDA-Public Use
  Company Number: None

PATIENT
  Sex: Female

DRUGS (2)
  1. LEVAQUIN [Suspect]
     Indication: LOCALISED INFECTION
     Dosage: 500 QD X5 PO
     Route: 048
     Dates: start: 20091123, end: 20091128
  2. LEVAQUIN [Suspect]
     Indication: PNEUMONIA
     Dosage: 500 QD X5 PO
     Route: 048
     Dates: start: 20091123, end: 20091128

REACTIONS (5)
  - ARTHRALGIA [None]
  - BURNING SENSATION [None]
  - FEELING ABNORMAL [None]
  - FORMICATION [None]
  - PAIN IN EXTREMITY [None]
